FAERS Safety Report 16563866 (Version 2)
Quarter: 2020Q4

REPORT INFORMATION
  Report Type: Spontaneous
  Country: US (occurrence: US)
  Receive Date: 20190712
  Receipt Date: 20201231
  Transmission Date: 20210113
  Serious: Yes (Disabling, Other)
  Sender: FDA-Public Use
  Company Number: US-REGENERON PHARMACEUTICALS, INC.-2019-41161

PATIENT

DRUGS (5)
  1. LUCENTIS [Suspect]
     Active Substance: RANIBIZUMAB
     Dosage: 0.1MG, INTO THE RIGHT EYE
     Dates: start: 20170601, end: 20170601
  2. LUCENTIS [Suspect]
     Active Substance: RANIBIZUMAB
     Indication: PRODUCT USED FOR UNKNOWN INDICATION
     Dosage: 0.1 UNK, INTO THE RIGHT EYE
  3. LUCENTIS [Suspect]
     Active Substance: RANIBIZUMAB
     Dosage: 0.1 MG, INTO THE RIGHT EYE
     Dates: start: 20170518, end: 20170518
  4. EYLEA [Suspect]
     Active Substance: AFLIBERCEPT
     Dosage: 1 MG, INTO THE RIGHT EYE, LAST DOSE PRIOR TO EVENT
     Route: 065
     Dates: start: 20170613, end: 20170613
  5. EYLEA [Suspect]
     Active Substance: AFLIBERCEPT
     Indication: PRODUCT USED FOR UNKNOWN INDICATION
     Dosage: 1 MG, INTO THE RIGHT EYE
     Route: 065

REACTIONS (3)
  - Endophthalmitis [Unknown]
  - Surgery [Unknown]
  - Blindness unilateral [Not Recovered/Not Resolved]

NARRATIVE: CASE EVENT DATE: 20170703
